FAERS Safety Report 8267763-9 (Version None)
Quarter: 2012Q2

REPORT INFORMATION
  Report Type: 
  Country: None (occurrence: None)
  Receive Date: 20120409
  Receipt Date: 20120402
  Transmission Date: 20120825
  Serious: Yes (Death, Other)
  Sender: FDA-Public Use
  Company Number: US-CELGENEUS-163-21880-10070668

PATIENT

DRUGS (5)
  1. MELPHALAN HYDROCHLORIDE [Suspect]
     Dosage: 5 MILLIGRAM/SQ. METER
     Route: 065
  2. PROTON PUMP INHIBITOR [Concomitant]
     Indication: GASTRIC DISORDER
     Route: 065
  3. ASPIRIN [Concomitant]
     Route: 065
  4. DEXAMETHASONE [Suspect]
     Dosage: 40 MILLIGRAM
     Route: 065
  5. REVLIMID [Suspect]
     Dosage: 10 MILLIGRAM
     Route: 048

REACTIONS (13)
  - AMYLOIDOSIS [None]
  - HYPERURICAEMIA [None]
  - HYPOMAGNESAEMIA [None]
  - THERAPEUTIC RESPONSE DECREASED [None]
  - FATIGUE [None]
  - HYPERKALAEMIA [None]
  - HYPERGLYCAEMIA [None]
  - ANAEMIA [None]
  - NEUTROPENIA [None]
  - HYPOKALAEMIA [None]
  - BLOOD CREATININE INCREASED [None]
  - THROMBOCYTOPENIA [None]
  - DISEASE PROGRESSION [None]
